FAERS Safety Report 8071168-3 (Version None)
Quarter: 2012Q1

REPORT INFORMATION
  Report Type: 
  Country: None (occurrence: None)
  Receive Date: 20120125
  Receipt Date: 20120117
  Transmission Date: 20120608
  Serious: Yes (Other)
  Sender: FDA-Public Use
  Company Number: PHHY2011CA105664

PATIENT
  Age: 70 Year
  Sex: Female
  Weight: 99 kg

DRUGS (4)
  1. HYZAAR [Concomitant]
     Route: 048
     Dates: start: 20100531
  2. LANSOPRAZOLE [Concomitant]
     Dosage: 25 MG, (HALF TABLET)
     Route: 048
     Dates: start: 20111118, end: 20111206
  3. RASILEZ [Suspect]
     Indication: HYPERTENSION
     Dosage: 150 MG, PER DAY
     Route: 048
     Dates: start: 20110811, end: 20111118
  4. LANSOPRAZOLE [Concomitant]
     Indication: GASTRITIS
     Dosage: 30 MG, PER DAY
     Route: 048
     Dates: start: 20110908, end: 20111206

REACTIONS (4)
  - PARAESTHESIA ORAL [None]
  - RENAL DISORDER [None]
  - DIZZINESS [None]
  - BLOOD CREATININE INCREASED [None]
